FAERS Safety Report 12371613 (Version 1)
Quarter: 2016Q2

REPORT INFORMATION
  Report Type: Spontaneous
  Country: JP (occurrence: JP)
  Receive Date: 20160516
  Receipt Date: 20160516
  Transmission Date: 20160815
  Serious: Yes (Life-Threatening)
  Sender: FDA-Public Use
  Company Number: JP-MALLINCKRODT-T201600640

PATIENT
  Age: 51 Year
  Sex: Male
  Weight: 78 kg

DRUGS (28)
  1. PACLITAXEL. [Concomitant]
     Active Substance: PACLITAXEL
     Dosage: 100
     Route: 051
     Dates: start: 20150730, end: 20150730
  2. OXIFAST [Concomitant]
     Active Substance: OXYCODONE
     Dosage: 350
     Route: 051
     Dates: start: 20150917, end: 20150921
  3. METHADONE [Suspect]
     Active Substance: METHADONE HYDROCHLORIDE
     Dosage: 20 MG, 60 MG DAILY DOSE
     Route: 048
     Dates: start: 20150818, end: 20150831
  4. FENTOS [Concomitant]
     Active Substance: FENTANYL
     Dosage: 2 MG
     Dates: start: 20150730, end: 20150817
  5. MAGMITT [Concomitant]
     Active Substance: MAGNESIUM OXIDE
     Dosage: 2000 MG
     Route: 048
  6. OXIFAST [Concomitant]
     Active Substance: OXYCODONE
     Indication: ANALGESIC THERAPY
     Dosage: 200 MG
     Route: 051
     Dates: start: 20150910, end: 20150913
  7. OXIFAST [Concomitant]
     Active Substance: OXYCODONE
     Dosage: 250 MG
     Route: 051
     Dates: start: 20150914, end: 20150916
  8. CARBOCAINE [Concomitant]
     Active Substance: MEPIVACAINE HYDROCHLORIDE
     Dosage: 48 ML
     Route: 008
     Dates: start: 20150924
  9. METHADONE [Suspect]
     Active Substance: METHADONE HYDROCHLORIDE
     Dosage: 15 MG, 45 MG DAILY DOSE
     Route: 048
     Dates: start: 20150730, end: 20150817
  10. FENTOS [Concomitant]
     Active Substance: FENTANYL
     Indication: ANALGESIC THERAPY
     Dosage: 8 MG
     Route: 062
     Dates: end: 20150628
  11. TIENAM [Concomitant]
     Active Substance: CILASTATIN SODIUM\IMIPENEM
     Dosage: 1000 MG
     Route: 051
     Dates: start: 20150921, end: 20151002
  12. METHADONE [Suspect]
     Active Substance: METHADONE HYDROCHLORIDE
     Dosage: 10 MG, 30 MG DAILY DOSE
     Route: 048
     Dates: start: 20150630, end: 20150729
  13. LANSOPRAZOLE. [Concomitant]
     Active Substance: LANSOPRAZOLE
     Dosage: 15 MG
     Route: 048
  14. CRAVIT [Concomitant]
     Active Substance: LEVOFLOXACIN
     Dosage: 250 MG
     Route: 048
     Dates: start: 20150905, end: 20150905
  15. FINIBAX [Concomitant]
     Active Substance: DORIPENEM MONOHYDRATE
     Dosage: 500 MG
     Route: 051
     Dates: start: 20151011, end: 20151021
  16. METHADONE [Suspect]
     Active Substance: METHADONE HYDROCHLORIDE
     Indication: CANCER PAIN
     Dosage: 5 MG, 15 MG DAILY DOSE
     Route: 048
     Dates: start: 20150623, end: 20150629
  17. FENTOS [Concomitant]
     Active Substance: FENTANYL
     Dosage: 6 MG
     Route: 062
     Dates: start: 20150629, end: 20150708
  18. FENTOS [Concomitant]
     Active Substance: FENTANYL
     Dosage: 4 MG
     Route: 062
     Dates: start: 20150709, end: 20150729
  19. LYRICA [Concomitant]
     Active Substance: PREGABALIN
     Indication: ANALGESIC THERAPY
     Dosage: 75 MG
     Route: 048
  20. AMITIZA [Concomitant]
     Active Substance: LUBIPROSTONE
     Dosage: 48 MCG
     Route: 048
  21. CRAVIT [Concomitant]
     Active Substance: LEVOFLOXACIN
     Dosage: 500 MG
     Route: 048
     Dates: start: 20150904, end: 20150904
  22. OXIFAST [Concomitant]
     Active Substance: OXYCODONE
     Dosage: 400 MG
     Route: 051
     Dates: start: 20150922
  23. METHADONE [Suspect]
     Active Substance: METHADONE HYDROCHLORIDE
     Dosage: 30 MG, 90 MG DAILY DOSE
     Route: 048
     Dates: start: 20150908, end: 20151021
  24. OXINORM [Concomitant]
     Active Substance: OXYCODONE HYDROCHLORIDE
     Indication: ANALGESIC THERAPY
     Dosage: 30 MG, PRN
     Route: 048
     Dates: start: 20150622
  25. METHADONE [Suspect]
     Active Substance: METHADONE HYDROCHLORIDE
     Dosage: 25 MG, 75 MG DAILY DOSE
     Route: 048
     Dates: start: 20150901, end: 20150907
  26. PACLITAXEL. [Concomitant]
     Active Substance: PACLITAXEL
     Indication: BLADDER CANCER
     Dosage: 100 MG
     Route: 051
     Dates: start: 20150709, end: 20150709
  27. NAIXAN [Concomitant]
     Active Substance: NAPROXEN SODIUM
     Indication: ANALGESIC THERAPY
     Dosage: 600 MG
     Route: 048
  28. FINIBAX [Concomitant]
     Active Substance: DORIPENEM MONOHYDRATE
     Dosage: 500 MG
     Route: 051
     Dates: start: 20150907, end: 20150920

REACTIONS (4)
  - Anaemia [Recovering/Resolving]
  - Dizziness [Recovered/Resolved]
  - Constipation [Recovering/Resolving]
  - Colonic fistula [Unknown]

NARRATIVE: CASE EVENT DATE: 20150625
